FAERS Safety Report 18472909 (Version 2)
Quarter: 2021Q1

REPORT INFORMATION
  Report Type: Spontaneous
  Country: FR (occurrence: FR)
  Receive Date: 20201106
  Receipt Date: 20210106
  Transmission Date: 20210419
  Serious: Yes (Hospitalization, Other)
  Sender: FDA-Public Use
  Company Number: FR-VIIV HEALTHCARE LIMITED-FR2020218193

PATIENT
  Sex: Female
  Weight: .95 kg

DRUGS (1)
  1. RETROVIR [Suspect]
     Active Substance: ZIDOVUDINE
     Indication: PROPHYLAXIS AGAINST HIV INFECTION
     Dosage: 2.5 MG, SINGLE (TOTAL)
     Route: 042
     Dates: start: 20201016, end: 20201016

REACTIONS (5)
  - Wrong strength [Recovered/Resolved]
  - Anaemia [Recovered/Resolved]
  - Respiratory distress [Recovered/Resolved]
  - Leukopenia [Recovered/Resolved]
  - Product preparation error [Recovered/Resolved]

NARRATIVE: CASE EVENT DATE: 20201016
